FAERS Safety Report 15991974 (Version 1)
Quarter: 2019Q1

REPORT INFORMATION
  Report Type: Spontaneous
  Country: CA (occurrence: CA)
  Receive Date: 20190221
  Receipt Date: 20190221
  Transmission Date: 20190418
  Serious: Yes (Other)
  Sender: FDA-Public Use
  Company Number: CA-FRESENIUS KABI-FK201901833

PATIENT
  Age: 14 Year
  Sex: Female
  Weight: 35 kg

DRUGS (1)
  1. ZOLEDRONIC ACID (MANUFACTURER UNKNOWN) [Suspect]
     Active Substance: ZOLEDRONIC ACID
     Indication: OSTEOGENESIS IMPERFECTA
     Route: 042

REACTIONS (2)
  - Fistula [Recovering/Resolving]
  - Osteonecrosis of jaw [Recovering/Resolving]
